FAERS Safety Report 12772516 (Version 1)
Quarter: 2016Q3

REPORT INFORMATION
  Report Type: Spontaneous
  Country: US (occurrence: US)
  Receive Date: 20160922
  Receipt Date: 20160922
  Transmission Date: 20161109
  Serious: No
  Sender: FDA-Public Use
  Company Number: US-BAYER-2016-183811

PATIENT
  Age: 62 Year
  Sex: Female

DRUGS (13)
  1. VITAMIN D3 [Concomitant]
     Active Substance: CHOLECALCIFEROL
  2. VITAMIN B6 [Concomitant]
     Active Substance: PYRIDOXINE HYDROCHLORIDE
  3. CALCIUM [Concomitant]
     Active Substance: CALCIUM
  4. VITAMIN E [Concomitant]
     Active Substance: .ALPHA.-TOCOPHEROL
  5. CLIMARA [Suspect]
     Active Substance: ESTRADIOL
     Indication: HORMONE REPLACEMENT THERAPY
     Dosage: 0.025 MG, CONT
     Route: 062
     Dates: start: 2013
  6. PANTOTHENIC ACID [Concomitant]
     Active Substance: PANTOTHENIC ACID
  7. VITAMIN B3 [Concomitant]
     Active Substance: NIACIN
  8. PROGESTERONE. [Concomitant]
     Active Substance: PROGESTERONE
  9. VITAMIN A [Concomitant]
     Active Substance: VITAMIN A
  10. VITAMIN B1 [Concomitant]
     Active Substance: THIAMINE HYDROCHLORIDE
  11. VITAMIN B2 [Concomitant]
     Active Substance: RIBOFLAVIN
  12. VITAMIN B12 [Concomitant]
     Active Substance: CYANOCOBALAMIN
  13. VITAMIN C [Concomitant]
     Active Substance: ASCORBIC ACID

REACTIONS (4)
  - Hormone level abnormal [Recovered/Resolved]
  - Fatigue [Recovered/Resolved]
  - Product adhesion issue [Recovered/Resolved]
  - Malaise [Recovered/Resolved]

NARRATIVE: CASE EVENT DATE: 201608
